FAERS Safety Report 5787399-9 (Version None)
Quarter: 2008Q2

REPORT INFORMATION
  Report Type: 
  Country: None (occurrence: None)
  Receive Date: 20080620
  Receipt Date: 20080613
  Transmission Date: 20081010
  Serious: Yes (Hospitalization)
  Sender: FDA-Public Use
  Company Number: 2008SP010160

PATIENT
  Age: 55 Year
  Sex: Male
  Weight: 102 kg

DRUGS (6)
  1. TEMODAR [Suspect]
     Indication: GLIOBLASTOMA MULTIFORME
     Dates: start: 20080429, end: 20080517
  2. TEMODAR [Suspect]
     Indication: GLIOBLASTOMA MULTIFORME
     Dates: start: 20080221
  3. DEXAMETHASONE TAB [Concomitant]
  4. OMEPRAZOLE [Concomitant]
  5. VICODIN [Concomitant]
  6. ZOFRAN	 /00955301/ [Concomitant]

REACTIONS (8)
  - BACTERAEMIA [None]
  - CLOSTRIDIAL INFECTION [None]
  - DIVERTICULITIS [None]
  - ESCHERICHIA INFECTION [None]
  - LARGE INTESTINE PERFORATION [None]
  - LIVER ABSCESS [None]
  - MENTAL STATUS CHANGES [None]
  - STREPTOCOCCAL INFECTION [None]
